FAERS Safety Report 5463980-1 (Version None)
Quarter: 2007Q3

REPORT INFORMATION
  Report Type: 
  Country: None (occurrence: None)
  Receive Date: 20070921
  Receipt Date: 20070911
  Transmission Date: 20080115
  Serious: Yes (Hospitalization)
  Sender: FDA-Public Use
  Company Number: US-JNJFOC-20070704145

PATIENT
  Sex: Female
  Weight: 81.19 kg

DRUGS (7)
  1. REMICADE [Suspect]
     Route: 042
  2. REMICADE [Suspect]
     Indication: COLITIS ULCERATIVE
     Route: 042
  3. AZATHIOPRINE [Concomitant]
  4. PREDNISONE [Concomitant]
  5. EFFEXOR [Concomitant]
  6. PROTONIX [Concomitant]
  7. XANAX [Concomitant]

REACTIONS (3)
  - APPENDICECTOMY [None]
  - OVARIAN CYST [None]
  - PERITONITIS BACTERIAL [None]
